FAERS Safety Report 5449730-3 (Version None)
Quarter: 2007Q3

REPORT INFORMATION
  Report Type: 
  Country: None (occurrence: None)
  Receive Date: 20070910
  Receipt Date: 20070910
  Transmission Date: 20080115
  Serious: Yes (Hospitalization)
  Sender: FDA-Public Use
  Company Number: None

PATIENT
  Age: 67 Year
  Sex: Male
  Weight: 61 kg

DRUGS (18)
  1. GEMCITABINE HCL [Suspect]
     Indication: PANCREATIC CARCINOMA METASTATIC
     Dosage: 1000MG/M2 IV BOLUS
     Route: 040
     Dates: start: 20070613, end: 20070718
  2. BEVACIZUMAB [Suspect]
     Indication: PANCREATIC CARCINOMA METASTATIC
     Dosage: 10MG/KG IV BOLUS
     Route: 040
     Dates: start: 20070613, end: 20070711
  3. ERLOTINIB [Suspect]
     Indication: PANCREATIC CARCINOMA METASTATIC
     Dosage: 100 MG PO QD
     Route: 048
     Dates: start: 20070613, end: 20070718
  4. AMBIEN [Concomitant]
  5. CALCIUM + VITAMIN D [Concomitant]
  6. COMPAZINE [Concomitant]
  7. CREON [Concomitant]
  8. GLYCOLAX [Concomitant]
  9. LIPITOR [Concomitant]
  10. LORAZEPAM [Concomitant]
  11. MSIR [Concomitant]
  12. OMEGA 3 FATTY ACIDS [Concomitant]
  13. OXYCONTIN [Concomitant]
  14. PERCOCET [Concomitant]
  15. REGLAN [Concomitant]
  16. RITALIN [Concomitant]
  17. SENNA-C [Concomitant]
  18. ZOLOFT [Concomitant]

REACTIONS (4)
  - BACTERIAL SEPSIS [None]
  - DISEASE PROGRESSION [None]
  - INTESTINAL OBSTRUCTION [None]
  - OBSTRUCTION GASTRIC [None]
